FAERS Safety Report 6821265-2 (Version None)
Quarter: 2010Q3

REPORT INFORMATION
  Report Type: 
  Country: None (occurrence: None)
  Receive Date: 20100707
  Receipt Date: 20080626
  Transmission Date: 20110219
  Serious: No
  Sender: FDA-Public Use
  Company Number: US-PFIZER INC-2008046153

PATIENT
  Sex: Female

DRUGS (10)
  1. SERTRALINE [Suspect]
     Indication: DEPRESSION
     Route: 048
     Dates: start: 20080505
  2. PREMARIN [Concomitant]
     Indication: MENOPAUSE
  3. FELODIPINE [Concomitant]
     Indication: HYPERTENSION
  4. SIMVASTATIN [Concomitant]
     Indication: BLOOD CHOLESTEROL
  5. FOSAMAX PLUS D [Concomitant]
     Indication: OSTEOPOROSIS
  6. TERAZOSIN HCL [Concomitant]
     Indication: HYPERTENSION
  7. METOPROLOL [Concomitant]
     Indication: HYPERTENSION
  8. NABUMETONE [Concomitant]
     Indication: PAIN
     Dates: end: 20080530
  9. CYCLOBENZAPRINE [Concomitant]
     Indication: HYPOTONIA
  10. TRAMADOL [Concomitant]
     Indication: PAIN
     Route: 048
     Dates: start: 20080530

REACTIONS (3)
  - DYSGEUSIA [None]
  - FOREIGN BODY [None]
  - THROAT IRRITATION [None]
